FAERS Safety Report 8771527 (Version 1)
Quarter: 2012Q4

REPORT INFORMATION
  Report Type: 
  Country: JP (occurrence: JP)
  Receive Date: 20120831
  Receipt Date: 20120831
  Transmission Date: 20130627
  Serious: Yes (Other)
  Sender: FDA-Public Use
  Company Number: JP-PFIZER INC-2012213188

PATIENT
  Age: 78 Year
  Sex: Male

DRUGS (2)
  1. ATARAX-P [Suspect]
     Indication: DELIRIUM
     Route: 048
  2. QUETIAPINE FUMARATE [Suspect]
     Indication: DELIRIUM
     Route: 048

REACTIONS (2)
  - Sedation [Recovering/Resolving]
  - Restlessness [Recovering/Resolving]
